FAERS Safety Report 6245946-7 (Version None)
Quarter: 2009Q2

REPORT INFORMATION
  Report Type: 
  Country: None (occurrence: None)
  Receive Date: 20090626
  Receipt Date: 20080806
  Transmission Date: 20091009
  Serious: No
  Sender: FDA-Public Use
  Company Number: A0741589A

PATIENT
  Sex: Male

DRUGS (6)
  1. IMITREX [Suspect]
     Indication: MIGRAINE
     Dosage: 50MG AS REQUIRED
     Route: 048
  2. PREVACID [Concomitant]
  3. ROPINIROLE [Concomitant]
     Indication: TREMOR
  4. PROPRANOLOL HYDROCHLORIDE [Concomitant]
  5. EFFEXOR XR [Concomitant]
     Indication: DEPRESSION
  6. ACETAMINOPHEN AND HYDROCODONE BITARTRATE [Concomitant]
     Indication: NECK PAIN

REACTIONS (2)
  - DRUG INEFFECTIVE [None]
  - FATIGUE [None]
